FAERS Safety Report 6059023-1 (Version None)
Quarter: 2009Q1

REPORT INFORMATION
  Report Type: 
  Country: None (occurrence: None)
  Receive Date: 20090130
  Receipt Date: 20090120
  Transmission Date: 20090719
  Serious: Yes (Other)
  Sender: FDA-Public Use
  Company Number: B0546731A

PATIENT

DRUGS (1)
  1. AUGMENTIN '125' [Suspect]
     Route: 042

REACTIONS (2)
  - INJURY [None]
  - PRODUCT QUALITY ISSUE [None]
